FAERS Safety Report 12409735 (Version 2)
Quarter: 2016Q2

REPORT INFORMATION
  Report Type: Spontaneous
  Country: CN (occurrence: CN)
  Receive Date: 20160526
  Receipt Date: 20160531
  Transmission Date: 20160815
  Serious: Yes (Other)
  Sender: FDA-Public Use
  Company Number: CN-JNJFOC-20160518359

PATIENT

DRUGS (2)
  1. IBUPROFEN. [Suspect]
     Active Substance: IBUPROFEN
     Route: 048
  2. IBUPROFEN. [Suspect]
     Active Substance: IBUPROFEN
     Indication: PATENT DUCTUS ARTERIOSUS
     Dosage: DOSE OF 10 MG/KG AND 5 MG/KG (AT A 1:1 DILUTION) 24 HOURS AND 48 HOURS LATER
     Route: 048

REACTIONS (7)
  - Incorrect route of drug administration [Unknown]
  - Gastric haemorrhage [Recovered/Resolved]
  - Feeding intolerance [Recovered/Resolved]
  - Product use issue [Unknown]
  - Intraventricular haemorrhage [Unknown]
  - Therapeutic response unexpected [Unknown]
  - Off label use [Unknown]
